FAERS Safety Report 18776552 (Version 1)
Quarter: 2021Q1

REPORT INFORMATION
  Report Type: Spontaneous
  Country: US (occurrence: US)
  Receive Date: 20210122
  Receipt Date: 20210122
  Transmission Date: 20210419
  Serious: Yes (Other)
  Sender: FDA-Public Use
  Company Number: US-JAZZ-2020-US-011560

PATIENT
  Age: 63 Year
  Sex: Female

DRUGS (5)
  1. ONDANSETRON [Concomitant]
     Active Substance: ONDANSETRON
     Indication: PRODUCT USED FOR UNKNOWN INDICATION
     Dosage: 8 MILLIGRAM, 30 MINUTES PRIOR TO STUDY DRUG INFUSION
     Route: 042
     Dates: start: 20200811, end: 20200811
  2. DEXAMETHASONE. [Concomitant]
     Active Substance: DEXAMETHASONE
     Indication: PRODUCT USED FOR UNKNOWN INDICATION
     Dosage: 8 MILLIGRAM, 30 MINUTES PRIOR TO STUDY DRUG INFUSION
     Route: 042
     Dates: start: 20200811, end: 20200811
  3. DEXAMETHASONE. [Concomitant]
     Active Substance: DEXAMETHASONE
     Dosage: 8 MILLIGRAM, 30 MINUTES PRIOR TO STUDY DRUG INFUSION
     Route: 042
     Dates: start: 20200901, end: 20200901
  4. ONDANSETRON [Concomitant]
     Active Substance: ONDANSETRON
     Dosage: 8 MILLIGRAM, 30 MINUTES PRIOR TO STUDY DRUG INFUSION
     Route: 042
     Dates: start: 20200901, end: 20200901
  5. ZEPZELCA [Suspect]
     Active Substance: LURBINECTEDIN
     Indication: SMALL CELL LUNG CANCER
     Dosage: 5.7 MILLIGRAM, EVERY 21 DAYS
     Route: 042
     Dates: start: 20200811

REACTIONS (3)
  - Infusion site discolouration [Recovering/Resolving]
  - Infusion site swelling [Recovering/Resolving]
  - Infusion site pain [Recovering/Resolving]

NARRATIVE: CASE EVENT DATE: 20200815
